FAERS Safety Report 8379643-9 (Version None)
Quarter: 2012Q2

REPORT INFORMATION
  Report Type: 
  Country: None (occurrence: None)
  Receive Date: 20120523
  Receipt Date: 20120517
  Transmission Date: 20120825
  Serious: Yes (Other)
  Sender: FDA-Public Use
  Company Number: FR-ROXANE LABORATORIES, INC.-2012-RO-01269RO

PATIENT
  Age: 96 Year
  Sex: Female

DRUGS (2)
  1. METHOTREXATE [Suspect]
     Indication: PEMPHIGOID
     Route: 048
  2. CLOBETASOL PROPIONATE [Suspect]
     Indication: PEMPHIGOID
     Dosage: 40 G
     Route: 048

REACTIONS (4)
  - HYPERSOMNIA [None]
  - ASTHENIA [None]
  - DECREASED APPETITE [None]
  - MUTISM [None]
